FAERS Safety Report 17538262 (Version 1)
Quarter: 2020Q1

REPORT INFORMATION
  Report Type: Spontaneous
  Country: US (occurrence: US)
  Receive Date: 20200313
  Receipt Date: 20200313
  Transmission Date: 20200409
  Serious: Yes (Hospitalization)
  Sender: FDA-Public Use
  Company Number: None

PATIENT
  Age: 60 Year
  Sex: Female

DRUGS (1)
  1. CAPECITABINE. [Suspect]
     Active Substance: CAPECITABINE
     Route: 048

REACTIONS (10)
  - Tachycardia [None]
  - Blood pressure increased [None]
  - Fibrin D dimer increased [None]
  - Pulmonary embolism [None]
  - Dizziness [None]
  - Tachypnoea [None]
  - Dyspnoea [None]
  - Anaphylactic reaction [None]
  - Bundle branch block right [None]
  - Contrast media reaction [None]

NARRATIVE: CASE EVENT DATE: 20200306
